FAERS Safety Report 8029563-4 (Version None)
Quarter: 2012Q1

REPORT INFORMATION
  Report Type: 
  Country: None (occurrence: None)
  Receive Date: 20120109
  Receipt Date: 20120106
  Transmission Date: 20120608
  Serious: No
  Sender: FDA-Public Use
  Company Number: US-PFIZER INC-2012005000

PATIENT
  Sex: Male
  Weight: 127 kg

DRUGS (2)
  1. CHANTIX [Suspect]
     Indication: SMOKING CESSATION THERAPY
     Dosage: 0.5 MG, DAILY
     Route: 048
     Dates: start: 20110101, end: 20110101
  2. LIPITOR [Concomitant]
     Indication: CARDIAC DISORDER
     Dosage: 40 MG, DAILY
     Route: 048

REACTIONS (1)
  - NASOPHARYNGITIS [None]
